FAERS Safety Report 6021390-2 (Version None)
Quarter: 2008Q4

REPORT INFORMATION
  Report Type: 
  Country: None (occurrence: None)
  Receive Date: 20081229
  Receipt Date: 20081219
  Transmission Date: 20090506
  Serious: Yes (Hospitalization)
  Sender: FDA-Public Use
  Company Number: B0551248A

PATIENT
  Age: 67 Year
  Sex: Male

DRUGS (12)
  1. AUGMENTIN '125' [Suspect]
     Dosage: 1G SINGLE DOSE
     Route: 048
     Dates: start: 20081015, end: 20081015
  2. CALCIPARINE [Concomitant]
     Dosage: .5ML TWICE PER DAY
     Route: 058
     Dates: start: 20081014, end: 20081014
  3. HEMIGOXINE [Concomitant]
     Dosage: .125MG PER DAY
     Route: 048
  4. LASILIX [Concomitant]
     Dosage: 40MG PER DAY
     Route: 048
  5. MACROGOL 4000 [Concomitant]
     Dosage: 1SAC PER DAY
     Route: 048
  6. ACENOCOUMAROL [Concomitant]
     Dosage: 1MG PER DAY
     Route: 048
  7. STILNOX [Concomitant]
     Dosage: 5MG PER DAY
     Route: 048
  8. INIPOMP [Concomitant]
     Dosage: 40MG PER DAY
     Route: 048
  9. ATARAX [Concomitant]
     Dosage: 25MG PER DAY
     Route: 048
  10. DOLIPRANE [Concomitant]
     Dosage: 3G PER DAY
     Route: 048
  11. ALDACTONE [Concomitant]
     Dosage: 25MG PER DAY
     Route: 048
  12. TRAMADOL HCL [Concomitant]
     Dosage: 50MG FOUR TIMES PER DAY
     Route: 065
     Dates: start: 20081013

REACTIONS (4)
  - ANGIOEDEMA [None]
  - BRONCHOSPASM [None]
  - PRURITUS [None]
  - RESPIRATORY DISTRESS [None]
